FAERS Safety Report 10159394 (Version 1)
Quarter: 2014Q2

REPORT INFORMATION
  Report Type: Spontaneous
  Country: GB (occurrence: GB)
  Receive Date: 20140508
  Receipt Date: 20140508
  Transmission Date: 20141212
  Serious: Yes (Hospitalization, Other)
  Sender: FDA-Public Use
  Company Number: GB-RANBAXY-2014RR-81012

PATIENT
  Age: 29 Year
  Sex: Male

DRUGS (4)
  1. RISPERIDONE [Suspect]
     Indication: BIPOLAR DISORDER
     Dosage: 3 MG, DAILY, QD
     Route: 048
     Dates: start: 2007
  2. RISPERIDONE [Suspect]
     Indication: BIPOLAR DISORDER
     Dosage: 1 MG, DAILY, QD
     Route: 048
     Dates: start: 201003
  3. RISPERIDONE [Suspect]
     Indication: BIPOLAR DISORDER
     Dosage: 6 MG, DAILY
     Route: 048
     Dates: start: 2011, end: 201306
  4. RISPERIDONE [Suspect]
     Indication: BIPOLAR DISORDER
     Dosage: 4 MG, BID
     Route: 048
     Dates: start: 2011

REACTIONS (6)
  - Psychotic disorder [Not Recovered/Not Resolved]
  - Weight increased [Not Recovered/Not Resolved]
  - Mental impairment [Not Recovered/Not Resolved]
  - Living in residential institution [Not Recovered/Not Resolved]
  - Physical disability [Not Recovered/Not Resolved]
  - Incorrect dose administered [Not Recovered/Not Resolved]
